FAERS Safety Report 23452229 (Version 1)
Quarter: 2024Q1

REPORT INFORMATION
  Report Type: Spontaneous
  Country: US (occurrence: US)
  Receive Date: 20240129
  Receipt Date: 20240129
  Transmission Date: 20240410
  Serious: Yes (Other)
  Sender: FDA-Public Use
  Company Number: -Clarivate-01001927719-PI003972-C1

PATIENT

DRUGS (1)
  1. OPDIVO [Suspect]
     Active Substance: NIVOLUMAB
     Indication: Endometrial stromal sarcoma

REACTIONS (2)
  - Tumour hyperprogression [Unknown]
  - Off label use [Unknown]
